FAERS Safety Report 16063114 (Version 1)
Quarter: 2019Q1

REPORT INFORMATION
  Report Type: Spontaneous
  Country: DE (occurrence: DE)
  Receive Date: 20190312
  Receipt Date: 20190312
  Transmission Date: 20190418
  Serious: Yes (Life-Threatening, Hospitalization)
  Sender: FDA-Public Use
  Company Number: DE-ELI_LILLY_AND_COMPANY-DE201903003005

PATIENT
  Age: 70 Year
  Sex: Male
  Weight: 98 kg

DRUGS (27)
  1. OLARATUMAB [Suspect]
     Active Substance: OLARATUMAB
     Indication: SOFT TISSUE SARCOMA
     Dosage: 20 MG/KG; CYCLE 1; ON DAYS 1 AND 8 OF EACH 21 DAY CYCLE
     Route: 042
     Dates: start: 20181016, end: 20181023
  2. DOXORUBICIN HYDROCHLORIDE. [Suspect]
     Active Substance: DOXORUBICIN HYDROCHLORIDE
     Dosage: 41.4 MG, CYCLICAL
     Route: 042
     Dates: start: 20181106, end: 20190111
  3. IFOSFAMIDE. [Suspect]
     Active Substance: IFOSFAMIDE
     Indication: SOFT TISSUE SARCOMA
     Dosage: ON DAYS 1 TO 4 OF EACH 21 DAY CYCLE
     Route: 042
     Dates: start: 20181016, end: 20181019
  4. IFOSFAMIDE. [Suspect]
     Active Substance: IFOSFAMIDE
     Dosage: 3312 UNK, CYCLICAL
     Route: 042
     Dates: start: 20181128, end: 20190112
  5. EMEND [Concomitant]
     Active Substance: APREPITANT
     Indication: PROPHYLAXIS
     Dosage: UNK UNK, UNKNOWN
     Route: 065
     Dates: start: 20181218, end: 20190112
  6. NEULASTA [Concomitant]
     Active Substance: PEGFILGRASTIM
     Indication: PROPHYLAXIS
     Dosage: UNK, UNKNOWN
     Route: 065
     Dates: start: 20181222, end: 20190113
  7. GLUCOSE [Concomitant]
     Active Substance: DEXTROSE
     Indication: PROPHYLAXIS
     Dosage: UNK, UNKNOWN
     Route: 065
     Dates: start: 20181217, end: 20181222
  8. METOPROLOL. [Concomitant]
     Active Substance: METOPROLOL
     Indication: AORTIC VALVE REPLACEMENT
     Dosage: UNK, UNKNOWN
     Route: 065
     Dates: start: 20181010
  9. DEXAMETHASONE. [Concomitant]
     Active Substance: DEXAMETHASONE
     Indication: PROPHYLAXIS
     Dosage: UNK UNK, UNKNOWN
     Route: 065
     Dates: start: 20181218, end: 20181221
  10. SPIRONOLACTON [Concomitant]
     Active Substance: SPIRONOLACTONE
     Indication: SYNOVIAL SARCOMA
     Dosage: UNK, UNKNOWN
     Route: 065
     Dates: start: 20181010
  11. GRANISETRON [Concomitant]
     Active Substance: GRANISETRON
     Indication: PROPHYLAXIS
     Dosage: UNK, UNKNOWN
     Route: 065
     Dates: start: 20181218, end: 20190112
  12. OLARATUMAB [Suspect]
     Active Substance: OLARATUMAB
     Dosage: 1350 UNK
     Route: 042
     Dates: start: 20181106, end: 20190109
  13. FUROSEMIDE. [Concomitant]
     Active Substance: FUROSEMIDE
     Indication: PROPHYLAXIS
     Dosage: UNK, UNKNOWN
     Route: 065
     Dates: start: 20190112, end: 20190112
  14. PIRACETAM [Concomitant]
     Active Substance: PIRACETAM
     Indication: PROPHYLAXIS
     Dosage: UNK, UNKNOWN
     Route: 065
     Dates: start: 20181217, end: 20181222
  15. DOXORUBICIN HYDROCHLORIDE. [Suspect]
     Active Substance: DOXORUBICIN HYDROCHLORIDE
     Indication: SOFT TISSUE SARCOMA
     Dosage: 53.5 UNK
     Route: 042
     Dates: start: 20181016, end: 20181018
  16. MESNA. [Suspect]
     Active Substance: MESNA
     Indication: SOFT TISSUE SARCOMA
     Dosage: ON DAYS 1 TO 4 OF EACH 21 DAY CYCLE
     Route: 042
     Dates: start: 20181015, end: 20190112
  17. IFOSFAMIDE. [Suspect]
     Active Substance: IFOSFAMIDE
     Dosage: 4140 MG, CYCLICAL
     Route: 042
     Dates: start: 20181106, end: 20181109
  18. SODIUM CHLORIDE. [Concomitant]
     Active Substance: SODIUM CHLORIDE
     Indication: PROPHYLAXIS
     Dosage: UNK UNK, UNKNOWN
     Route: 065
     Dates: start: 20181217, end: 20181222
  19. AMPHOTERICIN [Concomitant]
     Active Substance: AMPHOTERICIN B
     Indication: PROPHYLAXIS
     Dosage: UNK, UNKNOWN
     Route: 065
     Dates: start: 20190112, end: 20190113
  20. PANTOPRAZOLE SODIUM. [Concomitant]
     Active Substance: PANTOPRAZOLE SODIUM
     Indication: PROPHYLAXIS
     Dosage: UNK, UNKNOWN
     Route: 065
     Dates: start: 20181010
  21. HYDROMORPHONE [Concomitant]
     Active Substance: HYDROMORPHONE
     Indication: TUMOUR PAIN
     Dosage: UNK, UNKNOWN
     Route: 065
     Dates: start: 20181029
  22. BENZYDAMINE HYDROCHLORIDE [Concomitant]
     Active Substance: BENZYDAMINE HYDROCHLORIDE
     Indication: PROPHYLAXIS
     Dosage: UNK UNK, UNKNOWN
     Route: 065
     Dates: start: 20190112, end: 20190113
  23. GABAPENTIN. [Concomitant]
     Active Substance: GABAPENTIN
     Indication: TUMOUR PAIN
     Dosage: UNK, UNKNOWN
     Route: 065
     Dates: start: 20181030
  24. CLEMASTIN [Concomitant]
     Active Substance: CLEMASTINE
     Indication: PROPHYLAXIS
     Dosage: UNK, UNKNOWN
     Route: 065
     Dates: start: 20181218, end: 20181218
  25. MESNA. [Suspect]
     Active Substance: MESNA
     Indication: PROPHYLAXIS
  26. POTASSIUM CHLORIDE. [Concomitant]
     Active Substance: POTASSIUM CHLORIDE
     Indication: PROPHYLAXIS
     Dosage: UNK, UNKNOWN
     Route: 065
     Dates: start: 20181217, end: 20181222
  27. ENOXAPARIN [Concomitant]
     Active Substance: ENOXAPARIN
     Indication: PROPHYLAXIS
     Dosage: UNK, UNKNOWN
     Route: 065
     Dates: start: 20190112, end: 20190112

REACTIONS (2)
  - Platelet count decreased [Not Recovered/Not Resolved]
  - Febrile neutropenia [Recovered/Resolved]

NARRATIVE: CASE EVENT DATE: 2018
